FAERS Safety Report 9263546 (Version 1)
Quarter: 2013Q2

REPORT INFORMATION
  Report Type: Spontaneous
  Country: US (occurrence: None)
  Receive Date: 20130429
  Receipt Date: 20130429
  Transmission Date: 20140414
  Serious: No
  Sender: FDA-Public Use
  Company Number: None

PATIENT
  Age: 50 Year
  Sex: Female
  Weight: 31.75 kg

DRUGS (1)
  1. ESTRADIOL [Suspect]
     Indication: UTERINE MASS
     Route: 048
     Dates: start: 20120821, end: 20120830

REACTIONS (2)
  - Hot flush [None]
  - Emotional disorder [None]
